FAERS Safety Report 25038511 (Version 1)
Quarter: 2025Q1

REPORT INFORMATION
  Report Type: Spontaneous
  Country: US (occurrence: US)
  Receive Date: 20250304
  Receipt Date: 20250304
  Transmission Date: 20250409
  Serious: Yes (Hospitalization, Other)
  Sender: BIOGEN
  Company Number: US-BIOGENIDEC-2009BI001173

PATIENT
  Sex: Female
  Weight: 90.8 kg

DRUGS (5)
  1. AVONEX [Suspect]
     Active Substance: INTERFERON BETA-1A
     Indication: Multiple sclerosis
     Route: 050
     Dates: start: 20040604
  2. AVONEX [Suspect]
     Active Substance: INTERFERON BETA-1A
  3. AVONEX [Suspect]
     Active Substance: INTERFERON BETA-1A
  4. AVONEX [Suspect]
     Active Substance: INTERFERON BETA-1A
  5. ELAVIL [Suspect]
     Active Substance: AMITRIPTYLINE HYDROCHLORIDE
     Indication: Fibromyalgia
     Route: 050

REACTIONS (25)
  - Cystitis [Recovered/Resolved]
  - Road traffic accident [Recovered/Resolved]
  - Fall [Unknown]
  - Ankle fracture [Unknown]
  - Shock [Unknown]
  - Fibromyalgia [Unknown]
  - Bladder disorder [Not Recovered/Not Resolved]
  - Hallucination [Recovered/Resolved]
  - Loss of control of legs [Not Recovered/Not Resolved]
  - Gait disturbance [Not Recovered/Not Resolved]
  - Intentional dose omission [Unknown]
  - Arthropathy [Unknown]
  - Panic reaction [Unknown]
  - Visual acuity reduced [Unknown]
  - Pain [Unknown]
  - Apathy [Unknown]
  - Insomnia [Unknown]
  - Constipation [Unknown]
  - Mental impairment [Unknown]
  - Fatigue [Not Recovered/Not Resolved]
  - Asthenia [Not Recovered/Not Resolved]
  - Nausea [Unknown]
  - Pain [Unknown]
  - Paraesthesia [Unknown]
  - Depression [Unknown]

NARRATIVE: CASE EVENT DATE: 20050101
